FAERS Safety Report 9073971 (Version 1)
Quarter: 2013Q1

REPORT INFORMATION
  Report Type: Spontaneous
  Country: US (occurrence: US)
  Receive Date: 20130129
  Receipt Date: 20130129
  Transmission Date: 20140127
  Serious: No
  Sender: FDA-Public Use
  Company Number: US-ABBOTT-12P-163-0919471-00

PATIENT
  Age: 24 None
  Sex: 0
  Weight: 49.94 kg

DRUGS (4)
  1. HUMIRA 40 MG/0.8 ML PEN [Suspect]
     Indication: CROHN^S DISEASE
     Dates: start: 200912
  2. NUCYNTA [Concomitant]
     Indication: PAIN
  3. ZOFRAN [Concomitant]
     Indication: NAUSEA
  4. ZOLOFT [Concomitant]
     Indication: DEPRESSION

REACTIONS (5)
  - Iron deficiency [Unknown]
  - Injection site pain [Recovered/Resolved]
  - Injection site pain [Not Recovered/Not Resolved]
  - Blister [Recovered/Resolved]
  - Device malfunction [Not Recovered/Not Resolved]
